FAERS Safety Report 5703436-1 (Version None)
Quarter: 2008Q2

REPORT INFORMATION
  Report Type: 
  Country: None (occurrence: None)
  Receive Date: 20080411
  Receipt Date: 20080331
  Transmission Date: 20081010
  Serious: Yes (Other)
  Sender: FDA-Public Use
  Company Number: GB-PFIZER INC-2008029218

PATIENT
  Age: 47 Year
  Sex: Female

DRUGS (2)
  1. CHAMPIX [Suspect]
     Indication: SMOKING CESSATION THERAPY
     Route: 048
     Dates: start: 20080101, end: 20080201
  2. EFFEXOR [Concomitant]
     Route: 048

REACTIONS (4)
  - ANGER [None]
  - IMPATIENCE [None]
  - IRRITABILITY [None]
  - MOOD SWINGS [None]
